FAERS Safety Report 8902794 (Version 2)
Quarter: 2012Q4

REPORT INFORMATION
  Report Type: 
  Country: US (occurrence: US)
  Receive Date: 20121113
  Receipt Date: 20121220
  Transmission Date: 20130627
  Serious: No
  Sender: FDA-Public Use
  Company Number: US-PFIZER INC-2012281569

PATIENT
  Age: 72 Year
  Sex: Female
  Weight: 49.89 kg

DRUGS (7)
  1. LYRICA [Suspect]
     Indication: CHRONIC BACK PAIN
     Dosage: 150 mg, daily
     Dates: end: 201211
  2. LYRICA [Suspect]
     Indication: SPINAL COLUMN STENOSIS
  3. TERIPARATIDE [Concomitant]
     Indication: OSTEOARTHRITIS
     Dosage: 20 ug, daily
  4. CALCIUM [Concomitant]
     Indication: OSTEOARTHRITIS
     Dosage: 1400 mg, daily
  5. VITAMIN D [Concomitant]
     Indication: OSTEOARTHRITIS
     Dosage: 50000 IU, every other week
  6. NEXIUM [Concomitant]
     Indication: GASTROESOPHAGEAL REFLUX DISEASE
     Dosage: 40 mg, 2x/day
  7. SIMVASTATIN [Concomitant]
     Indication: HIGH CHOLESTEROL
     Dosage: 10 mg, daily

REACTIONS (1)
  - Gait disturbance [Recovered/Resolved]
